FAERS Safety Report 13285914 (Version 1)
Quarter: 2017Q1

REPORT INFORMATION
  Report Type: Spontaneous
  Country: JP (occurrence: JP)
  Receive Date: 20170302
  Receipt Date: 20170302
  Transmission Date: 20170428
  Serious: Yes (Death, Life-Threatening)
  Sender: FDA-Public Use
  Company Number: JP-ABBVIE-16K-087-1805901-00

PATIENT
  Age: 67 Year
  Sex: Female

DRUGS (5)
  1. HUMIRA [Suspect]
     Active Substance: ADALIMUMAB
     Indication: COLITIS ULCERATIVE
     Route: 058
     Dates: start: 201312
  2. MESALAZINE [Concomitant]
     Active Substance: MESALAMINE
     Indication: COLITIS ULCERATIVE
     Route: 048
  3. AZANIN [Suspect]
     Active Substance: AZATHIOPRINE
     Indication: COLITIS ULCERATIVE
     Route: 048
  4. AZANIN [Suspect]
     Active Substance: AZATHIOPRINE
     Route: 065
  5. CICLOSPORIN [Concomitant]
     Active Substance: CYCLOSPORINE
     Indication: COLITIS ULCERATIVE

REACTIONS (3)
  - Pneumonia fungal [Fatal]
  - Colitis ulcerative [Unknown]
  - Disseminated intravascular coagulation [Fatal]
